FAERS Safety Report 24054793 (Version 1)
Quarter: 2024Q3

REPORT INFORMATION
  Report Type: Spontaneous
  Country: FR (occurrence: FR)
  Receive Date: 20240705
  Receipt Date: 20240705
  Transmission Date: 20241017
  Serious: Yes (Other)
  Sender: RANBAXY
  Company Number: FR-SUN PHARMACEUTICAL INDUSTRIES LTD-2024RR-455082

PATIENT
  Age: 36 Year
  Sex: Female
  Weight: 81 kg

DRUGS (2)
  1. CETIRIZINE [Suspect]
     Active Substance: CETIRIZINE HYDROCHLORIDE
     Indication: Hypersensitivity
     Dosage: 10 MILLIGRAM, DAILY, 1 CP/D
     Route: 048
     Dates: start: 20240212, end: 20240218
  2. PNEUMOVAX 23 [Suspect]
     Active Substance: PNEUMOCOCCAL VACCINE, POLYVALENT 23
     Indication: Immunisation
     Dosage: 1 DOSAGE FORM
     Route: 058
     Dates: start: 20240212, end: 20240212

REACTIONS (3)
  - Palpitations [Recovering/Resolving]
  - Hypersensitivity [Recovered/Resolved]
  - Chest pain [Recovering/Resolving]

NARRATIVE: CASE EVENT DATE: 20240212
